FAERS Safety Report 5025744-2 (Version None)
Quarter: 2006Q2

REPORT INFORMATION
  Report Type: 
  Country: None (occurrence: None)
  Receive Date: 20060614
  Receipt Date: 20060523
  Transmission Date: 20061013
  Serious: Yes (Other)
  Sender: FDA-Public Use
  Company Number: FR-NOVOPROD-253733

PATIENT
  Age: 7 Year
  Sex: Male

DRUGS (2)
  1. ACTRAPID [Suspect]
     Indication: DIABETES MELLITUS INSULIN-DEPENDENT
  2. INSULATARD NPH HUMAN [Suspect]
     Indication: DIABETES MELLITUS INSULIN-DEPENDENT

REACTIONS (2)
  - DRUG HYPERSENSITIVITY [None]
  - INJECTION SITE ATROPHY [None]
